FAERS Safety Report 6190935-4 (Version None)
Quarter: 2009Q2

REPORT INFORMATION
  Report Type: 
  Country: None (occurrence: None)
  Receive Date: 20090514
  Receipt Date: 20090429
  Transmission Date: 20091009
  Serious: Yes (Hospitalization)
  Sender: FDA-Public Use
  Company Number: US-MERCK-0905USA01590

PATIENT
  Sex: Male

DRUGS (1)
  1. CORTONE [Suspect]
     Route: 051

REACTIONS (2)
  - DRUG HYPERSENSITIVITY [None]
  - MENTAL STATUS CHANGES [None]
